FAERS Safety Report 8866123 (Version 1)
Quarter: 2012Q4

REPORT INFORMATION
  Report Type: Report from Study
  Country: CN (occurrence: CN)
  Receive Date: 20121025
  Receipt Date: 20121025
  Transmission Date: 20130627
  Serious: Yes (Death, Life-Threatening, Hospitalization, Other)
  Sender: FDA-Public Use
  Company Number: CN-PFIZER INC-2012263545

PATIENT
  Age: 72 Year
  Sex: Male

DRUGS (7)
  1. IRINOTECAN HCL [Suspect]
     Indication: PALLIATIVE CARE
     Dosage: 280 mg, day 1
     Route: 042
     Dates: start: 20111021, end: 20111021
  2. IRINOTECAN HCL [Suspect]
     Indication: COLORECTAL CANCER METASTATIC
  3. BEVACIZUMAB [Suspect]
     Indication: COLORECTAL CANCER METASTATIC
     Dosage: 300 mg, 1x/day
     Route: 042
     Dates: start: 20111021, end: 20111021
  4. FLUOROURACIL [Suspect]
     Indication: COLORECTAL CANCER METASTATIC
     Dosage: 4.625 g d1
     Dates: start: 20111021, end: 20111023
  5. GRANISETRON [Concomitant]
     Indication: VOMITING
     Dosage: UNK
     Route: 042
  6. ENALAPRIL MALEATE [Concomitant]
     Indication: HYPERTENSION
  7. HARNAL [Concomitant]
     Indication: BENIGN PROSTATIC HYPERPLASIA

REACTIONS (4)
  - Death [Fatal]
  - Gastrointestinal haemorrhage [Recovering/Resolving]
  - Bone marrow failure [Recovered/Resolved]
  - Intestinal obstruction [Recovering/Resolving]
